FAERS Safety Report 9667798 (Version 1)
Quarter: 2013Q4

REPORT INFORMATION
  Report Type: Spontaneous
  Country: US (occurrence: None)
  Receive Date: 20131101
  Receipt Date: 20131101
  Transmission Date: 20140711
  Serious: Yes (Hospitalization, Other)
  Sender: FDA-Public Use
  Company Number: 2013000024

PATIENT
  Age: 24 Year
  Sex: Female

DRUGS (3)
  1. TRAZODONE (TRAZODONE) TABLET [Suspect]
     Route: 048
  2. AMLODIPINE MALEATE [Suspect]
     Route: 048
  3. SERTRALINE (SERTRALINE HYDROCHLORIDE) [Concomitant]

REACTIONS (18)
  - Intentional overdose [None]
  - Hypotension [None]
  - Nausea [None]
  - Vomiting [None]
  - Diarrhoea [None]
  - Tachycardia [None]
  - Metabolic acidosis [None]
  - Renal failure [None]
  - Renal tubular necrosis [None]
  - Lung infiltration [None]
  - Rhabdomyolysis [None]
  - Cold sweat [None]
  - Continuous haemodiafiltration [None]
  - Respiratory rate increased [None]
  - Haemodynamic instability [None]
  - Leukocytosis [None]
  - Staphylococcal infection [None]
  - Suicide attempt [None]
